FAERS Safety Report 10287516 (Version 3)
Quarter: 2015Q2

REPORT INFORMATION
  Report Type: Spontaneous
  Country: JP (occurrence: JP)
  Receive Date: 20140709
  Receipt Date: 20150514
  Transmission Date: 20150821
  Serious: Yes (Death, Hospitalization, Other)
  Sender: FDA-Public Use
  Company Number: JP-GLAXOSMITHKLINE-B1011014A

PATIENT
  Age: 62 Year
  Sex: Female
  Weight: 41 kg

DRUGS (2)
  1. PAZOPANIB [Suspect]
     Active Substance: PAZOPANIB
     Indication: SARCOMA UTERUS
     Dosage: UNK
     Route: 048
  2. PAZOPANIB [Suspect]
     Active Substance: PAZOPANIB
     Dosage: 600 MG, QD
     Route: 048
     Dates: start: 20130901, end: 20130902

REACTIONS (3)
  - Cardiac disorder [Recovering/Resolving]
  - Respiratory failure [Fatal]
  - Dyspnoea [Unknown]

NARRATIVE: CASE EVENT DATE: 201308
